FAERS Safety Report 5623235-9 (Version None)
Quarter: 2008Q1

REPORT INFORMATION
  Report Type: 
  Country: None (occurrence: None)
  Receive Date: 20080212
  Receipt Date: 20080207
  Transmission Date: 20080703
  Serious: Yes (Other)
  Sender: FDA-Public Use
  Company Number: GB-MERCK-0802GBR00029

PATIENT
  Sex: Male

DRUGS (2)
  1. DECADRON [Suspect]
     Route: 048
  2. BORTEZOMIB [Suspect]
     Route: 065

REACTIONS (1)
  - PSYCHOTIC DISORDER [None]
